FAERS Safety Report 8573759-X (Version None)
Quarter: 2012Q3

REPORT INFORMATION
  Report Type: 
  Country: None (occurrence: None)
  Receive Date: 20120806
  Receipt Date: 20120731
  Transmission Date: 20120928
  Serious: Yes (Disabling)
  Sender: FDA-Public Use
  Company Number: JP-GLAXOSMITHKLINE-B0807035A

PATIENT
  Sex: Female

DRUGS (5)
  1. RABEPRAZOLE SODIUM [Concomitant]
     Indication: PROPHYLAXIS
     Route: 048
  2. MUCOSTA [Concomitant]
     Indication: PROPHYLAXIS
     Route: 065
  3. REVOLADE [Suspect]
     Indication: IDIOPATHIC THROMBOCYTOPENIC PURPURA
     Dosage: 12.5MG PER DAY
     Route: 048
     Dates: start: 20120524, end: 20120603
  4. PREDNISOLONE [Concomitant]
     Indication: IDIOPATHIC THROMBOCYTOPENIC PURPURA
     Route: 065
  5. ALFAROL [Concomitant]
     Indication: PROPHYLAXIS
     Route: 048

REACTIONS (1)
  - PUTAMEN HAEMORRHAGE [None]
